FAERS Safety Report 14543513 (Version 1)
Quarter: 2018Q1

REPORT INFORMATION
  Report Type: Spontaneous
  Country: US (occurrence: US)
  Receive Date: 20180216
  Receipt Date: 20180216
  Transmission Date: 20180509
  Serious: No
  Sender: FDA-Public Use
  Company Number: US-TEVA-2018-US-849609

PATIENT
  Sex: Female

DRUGS (2)
  1. FENTANYL. [Suspect]
     Active Substance: FENTANYL
     Indication: FRACTURE
  2. FENTANYL. [Suspect]
     Active Substance: FENTANYL
     Indication: HEADACHE

REACTIONS (2)
  - Drug effect incomplete [Unknown]
  - Product packaging quantity issue [Unknown]
